FAERS Safety Report 4713164-7 (Version None)
Quarter: 2005Q3

REPORT INFORMATION
  Report Type: 
  Country: None (occurrence: None)
  Receive Date: 20050713
  Receipt Date: 20050713
  Transmission Date: 20060218
  Serious: Yes (Hospitalization)
  Sender: FDA-Public Use
  Company Number: None

PATIENT
  Sex: Male
  Weight: 112.0385 kg

DRUGS (2)
  1. TOPIRAMATE [Suspect]
     Indication: AFFECTIVE DISORDER
     Dosage: 25 MG QD, 50 MG QD
     Dates: start: 20050305, end: 20050312
  2. TOPIRAMATE [Suspect]
     Indication: AFFECTIVE DISORDER
     Dosage: 25 MG QD, 50 MG QD
     Dates: start: 20050313, end: 20050331

REACTIONS (1)
  - METABOLIC ACIDOSIS [None]
